FAERS Safety Report 22080414 (Version 2)
Quarter: 2023Q1

REPORT INFORMATION
  Report Type: Spontaneous
  Country: RU (occurrence: RU)
  Receive Date: 20230309
  Receipt Date: 20230314
  Transmission Date: 20230418
  Serious: Yes (Hospitalization, Other)
  Sender: FDA-Public Use
  Company Number: RU-BAYER-2023A030343

PATIENT
  Age: 54 Year
  Sex: Female
  Weight: 80 kg

DRUGS (1)
  1. ULTRAVIST [Suspect]
     Active Substance: IOPROMIDE
     Indication: Computerised tomogram
     Dosage: UNK UNK, ONCE
     Route: 042
     Dates: start: 20230301, end: 20230301

REACTIONS (7)
  - Contusion [None]
  - Nasal oedema [None]
  - Swelling [None]
  - Dyspnoea [None]
  - Rash macular [None]
  - Nasal obstruction [None]
  - Blood pressure increased [None]
